FAERS Safety Report 5031164-7 (Version None)
Quarter: 2006Q2

REPORT INFORMATION
  Report Type: 
  Country: None (occurrence: None)
  Receive Date: 20060621
  Receipt Date: 20060606
  Transmission Date: 20061013
  Serious: Yes (Hospitalization)
  Sender: FDA-Public Use
  Company Number: US-AMGEN-STX182010

PATIENT
  Sex: Female

DRUGS (2)
  1. ENBREL [Suspect]
     Indication: JUVENILE ARTHRITIS
     Route: 058
     Dates: start: 20030501
  2. METHOTREXATE [Concomitant]
     Dates: start: 20040101

REACTIONS (6)
  - BLISTER [None]
  - BRONCHITIS [None]
  - EAR INFECTION [None]
  - HYSTERECTOMY [None]
  - INJECTION SITE PAIN [None]
  - RASH ERYTHEMATOUS [None]
